FAERS Safety Report 9950961 (Version 1)
Quarter: 2014Q1

REPORT INFORMATION
  Report Type: Report from Study
  Country: US (occurrence: US)
  Receive Date: 20140304
  Receipt Date: 20140304
  Transmission Date: 20141002
  Serious: No
  Sender: FDA-Public Use
  Company Number: US-ABBVIE-13P-163-1070200-00

PATIENT
  Age: 59 Year
  Sex: Female
  Weight: 129.39 kg

DRUGS (8)
  1. HUMIRA [Suspect]
     Indication: RHEUMATOID ARTHRITIS
     Route: 058
     Dates: start: 2011
  2. PHENOBARBITAL [Concomitant]
     Indication: EPILEPSY
  3. METHOTREXATE [Concomitant]
     Indication: RHEUMATOID ARTHRITIS
  4. FOLIC ACID [Concomitant]
     Indication: VITAMIN SUPPLEMENTATION
  5. PROTONIX [Concomitant]
     Indication: GASTROOESOPHAGEAL REFLUX DISEASE
  6. LISINOPRIL [Concomitant]
     Indication: HYPERTENSION
  7. TEGRETOL XR [Concomitant]
     Indication: EPILEPSY
  8. LEVOTHYROXINE [Concomitant]
     Indication: HYPOTHYROIDISM

REACTIONS (2)
  - Influenza [Recovered/Resolved]
  - Nausea [Recovered/Resolved]
